FAERS Safety Report 25197056 (Version 2)
Quarter: 2025Q3

REPORT INFORMATION
  Report Type: Report from Study
  Country: ZA (occurrence: ZA)
  Receive Date: 20250415
  Receipt Date: 20250809
  Transmission Date: 20251021
  Serious: Yes (Other)
  Sender: ALEXION PHARMACEUTICALS
  Company Number: ZA-AstraZeneca-CH-00844502A

PATIENT
  Age: 78 Year
  Sex: Female

DRUGS (7)
  1. BUDESONIDE\FORMOTEROL [Suspect]
     Active Substance: BUDESONIDE\FORMOTEROL
     Indication: Asthma
  2. BUDESONIDE\FORMOTEROL [Suspect]
     Active Substance: BUDESONIDE\FORMOTEROL
     Indication: Chronic obstructive pulmonary disease
  3. BUDESONIDE\FORMOTEROL [Suspect]
     Active Substance: BUDESONIDE\FORMOTEROL
     Indication: Emphysema
  4. Amloc [Concomitant]
     Indication: Hypertension
  5. Amloc [Concomitant]
     Indication: Cardiac disorder
  6. PREDATOR [Concomitant]
     Active Substance: LIDOCAINE HYDROCHLORIDE
     Indication: Hypertension
  7. PREDATOR [Concomitant]
     Active Substance: LIDOCAINE HYDROCHLORIDE
     Indication: Cardiac disorder

REACTIONS (1)
  - Thrombosis [Unknown]
